FAERS Safety Report 8808154 (Version 1)
Quarter: 2012Q4

REPORT INFORMATION
  Report Type: 
  Country: US (occurrence: US)
  Receive Date: 20120925
  Receipt Date: 20120925
  Transmission Date: 20130627
  Serious: No
  Sender: FDA-Public Use
  Company Number: US-B.I. PHARMACEUTICALS,INC./RIDGEFIELD-2011-BP-25445BP

PATIENT
  Age: 67 Year
  Sex: Female

DRUGS (9)
  1. ATROVENT INHALATION AEROSOL HFA [Suspect]
     Indication: CHRONIC OBSTRUCTIVE PULMONARY DISEASE
     Dosage: 170 mcg
     Route: 055
     Dates: start: 2011
  2. ATROVENT INHALATION AEROSOL HFA [Suspect]
     Indication: EMPHYSEMA
  3. SYMBICORT [Concomitant]
     Indication: CHRONIC OBSTRUCTIVE PULMONARY DISEASE
  4. VENTOLIN [Concomitant]
     Indication: CHRONIC OBSTRUCTIVE PULMONARY DISEASE
  5. KLONOPIN [Concomitant]
     Indication: HYPERTENSION
  6. TRIAMTERENE [Concomitant]
     Indication: HYPERTENSION
  7. PREMPRO [Concomitant]
     Indication: HORMONE THERAPY
  8. TRAMADOL [Concomitant]
     Indication: PAIN
  9. GABAPENTIN [Concomitant]
     Indication: NEURALGIA

REACTIONS (1)
  - Dyspnoea [Not Recovered/Not Resolved]
